FAERS Safety Report 23071326 (Version 4)
Quarter: 2024Q1

REPORT INFORMATION
  Report Type: Report from Study
  Country: JP (occurrence: JP)
  Receive Date: 20231016
  Receipt Date: 20240211
  Transmission Date: 20240410
  Serious: Yes (Hospitalization, Other)
  Sender: FDA-Public Use
  Company Number: JP-ABBVIE-22K-087-4451403-00

PATIENT
  Age: 77 Year
  Sex: Male
  Weight: 82 kg

DRUGS (11)
  1. RINVOQ [Suspect]
     Active Substance: UPADACITINIB
     Indication: Rheumatoid arthritis
     Dosage: 15 MILLIGRAM?LAST ADMIN DATE WAS 2021
     Route: 048
     Dates: start: 20210531
  2. RINVOQ [Suspect]
     Active Substance: UPADACITINIB
     Indication: Rheumatoid arthritis
     Route: 048
     Dates: start: 20210817, end: 20220925
  3. VONOPRAZAN FUMARATE [Concomitant]
     Active Substance: VONOPRAZAN FUMARATE
     Indication: Product used for unknown indication
     Dosage: 10 MILLIGRAM
     Route: 048
  4. FUROSEMIDE [Concomitant]
     Active Substance: FUROSEMIDE
     Indication: Product used for unknown indication
     Dosage: 20 MILLIGRAM
     Route: 048
  5. AMBROXOL HYDROCHLORIDE [Concomitant]
     Active Substance: AMBROXOL HYDROCHLORIDE
     Indication: Product used for unknown indication
     Route: 048
  6. SILODOSIN [Concomitant]
     Active Substance: SILODOSIN
     Indication: Product used for unknown indication
     Dosage: 8 MILLIGRAM
     Route: 048
  7. HERBALS [Concomitant]
     Active Substance: HERBALS
     Indication: Product used for unknown indication
     Dosage: 2500 MILLIGRAM
     Route: 048
  8. CARBOCYSTEINE [Concomitant]
     Active Substance: CARBOCYSTEINE
     Indication: Product used for unknown indication
     Dosage: 1500 MILLIGRAM
     Route: 048
  9. ALENDRONATE SODIUM [Concomitant]
     Active Substance: ALENDRONATE SODIUM
     Indication: Product used for unknown indication
     Dosage: 35 MG/WEEK
     Route: 048
  10. ABATACEPT [Concomitant]
     Active Substance: ABATACEPT
     Indication: Product used for unknown indication
     Dosage: GENETICAL RECOMBINATION?125 MG/WEEK
     Dates: start: 202301
  11. TOCILIZUMAB [Concomitant]
     Active Substance: TOCILIZUMAB
     Indication: Product used for unknown indication
     Dates: start: 20230307

REACTIONS (6)
  - Interstitial lung disease [Recovering/Resolving]
  - Abdominal distension [Recovering/Resolving]
  - Pneumonia bacterial [Recovering/Resolving]
  - Arthritis [Unknown]
  - Infection [Unknown]
  - Arthritis bacterial [Unknown]

NARRATIVE: CASE EVENT DATE: 20210501
